FAERS Safety Report 10381075 (Version 1)
Quarter: 2014Q3

REPORT INFORMATION
  Report Type: Spontaneous
  Country: US (occurrence: None)
  Receive Date: 20140808
  Receipt Date: 20140808
  Transmission Date: 20150326
  Serious: Yes (Hospitalization)
  Sender: FDA-Public Use
  Company Number: BD-2014-0052

PATIENT
  Age: 13 Year
  Sex: Female
  Weight: 59 kg

DRUGS (6)
  1. BUPROPION [Suspect]
     Active Substance: BUPROPION
     Indication: INTENTIONAL OVERDOSE
  2. CITALOPRAM [Suspect]
     Active Substance: CITALOPRAM HYDROBROMIDE
     Indication: INTENTIONAL OVERDOSE
  3. ACETAMINOPHEN. [Suspect]
     Active Substance: ACETAMINOPHEN
     Indication: INTENTIONAL OVERDOSE
  4. DIPHENHYDRAMINE [Suspect]
     Active Substance: DIPHENHYDRAMINE
     Indication: INTENTIONAL OVERDOSE
  5. OMEPRAZOLE. [Suspect]
     Active Substance: OMEPRAZOLE
     Indication: INTENTIONAL OVERDOSE
  6. NAPROXEN. [Suspect]
     Active Substance: NAPROXEN
     Indication: INTENTIONAL OVERDOSE

REACTIONS (24)
  - Toxicity to various agents [None]
  - Intentional overdose [None]
  - Hallucination [None]
  - Rhabdomyolysis [None]
  - Sweat gland disorder [None]
  - Gastrointestinal sounds abnormal [None]
  - Tremor [None]
  - Hyperthermia [None]
  - Flushing [None]
  - Hypohidrosis [None]
  - Urinary retention [None]
  - Restlessness [None]
  - Blood glucose increased [None]
  - Tachypnoea [None]
  - Myoclonus [None]
  - Muscle rigidity [None]
  - Agitation [None]
  - Mydriasis [None]
  - Hypertension [None]
  - Electrocardiogram QT prolonged [None]
  - Excoriation [None]
  - Disorientation [None]
  - Tachycardia [None]
  - Anxiety [None]
